FAERS Safety Report 10932607 (Version 1)
Quarter: 2015Q1

REPORT INFORMATION
  Report Type: Spontaneous
  Country: US (occurrence: None)
  Receive Date: 20150319
  Receipt Date: 20150319
  Transmission Date: 20150721
  Serious: Yes (Disabling)
  Sender: FDA-Public Use
  Company Number: None

PATIENT
  Age: 29 Year
  Sex: Male
  Weight: 113.4 kg

DRUGS (1)
  1. LOVASTATIN. [Suspect]
     Active Substance: LOVASTATIN
     Indication: HIGH DENSITY LIPOPROTEIN DECREASED
     Dosage: 1 PILL
     Route: 048
     Dates: start: 20090301, end: 20091130

REACTIONS (3)
  - Tendonitis [None]
  - Hepatic enzyme increased [None]
  - Myalgia [None]
